FAERS Safety Report 23231531 (Version 2)
Quarter: 2023Q4

REPORT INFORMATION
  Report Type: Spontaneous
  Country: AT (occurrence: AT)
  Receive Date: 20231127
  Receipt Date: 20231204
  Transmission Date: 20240109
  Serious: Yes (Other)
  Sender: FDA-Public Use
  Company Number: AT-ABBVIE-5506652

PATIENT
  Sex: Female

DRUGS (7)
  1. HUMIRA [Suspect]
     Active Substance: ADALIMUMAB
     Indication: Rheumatoid arthritis
     Dates: start: 201108, end: 201202
  2. HUMIRA [Suspect]
     Active Substance: ADALIMUMAB
     Route: 058
     Dates: start: 201108, end: 201202
  3. ABATACEPT [Suspect]
     Active Substance: ABATACEPT
     Indication: Product used for unknown indication
     Route: 065
     Dates: start: 201203
  4. ETANERCEPT [Suspect]
     Active Substance: ETANERCEPT
     Indication: Product used for unknown indication
     Route: 065
     Dates: start: 201401, end: 201701
  5. BARICITINIB [Suspect]
     Active Substance: BARICITINIB
     Indication: Product used for unknown indication
     Route: 065
     Dates: start: 201806
  6. TOCILIZUMAB [Concomitant]
     Active Substance: TOCILIZUMAB
     Indication: Product used for unknown indication
     Dates: start: 201703
  7. CORTISONE [Concomitant]
     Active Substance: CORTISONE
     Indication: Product used for unknown indication
     Dates: start: 201805, end: 201809

REACTIONS (16)
  - Synovectomy [Recovering/Resolving]
  - Weight decreased [Unknown]
  - Rheumatoid arthritis [Unknown]
  - Magnetic resonance imaging abnormal [Unknown]
  - Neurolysis [Unknown]
  - Gingivitis [Unknown]
  - Spinal instability [Unknown]
  - Spinal pain [Unknown]
  - Osteochondrosis [Unknown]
  - Cubital tunnel syndrome [Unknown]
  - Tenosynovitis [Unknown]
  - Therapeutic product effect decreased [Unknown]
  - Joint stiffness [Recovering/Resolving]
  - Post procedural complication [Unknown]
  - Therapeutic product effect decreased [Unknown]
  - Therapeutic product effect decreased [Unknown]

NARRATIVE: CASE EVENT DATE: 20140101
